FAERS Safety Report 19085363 (Version 4)
Quarter: 2021Q2

REPORT INFORMATION
  Report Type: Report from Study
  Country: US (occurrence: US)
  Receive Date: 20210402
  Receipt Date: 20210518
  Transmission Date: 20210717
  Serious: No
  Sender: FDA-Public Use
  Company Number: US-ALXN-A202104123

PATIENT
  Sex: Female

DRUGS (1)
  1. STRENSIQ [Suspect]
     Active Substance: ASFOTASE ALFA
     Indication: HYPOPHOSPHATASIA
     Dosage: UNK
     Route: 065

REACTIONS (20)
  - Skin injury [Recovering/Resolving]
  - Thirst [Unknown]
  - Contusion [Unknown]
  - Injection site erythema [Unknown]
  - Pain [Recovering/Resolving]
  - Muscle spasms [Unknown]
  - Injection site swelling [Unknown]
  - Gait disturbance [Unknown]
  - Decreased appetite [Unknown]
  - Swelling [Unknown]
  - Pain in extremity [Unknown]
  - Stress [Unknown]
  - Injection site pruritus [Recovering/Resolving]
  - Arthralgia [Unknown]
  - Fatigue [Recovering/Resolving]
  - Mass [Unknown]
  - Injection site pain [Unknown]
  - Pollakiuria [Unknown]
  - Sleep disorder [Unknown]
  - Injection site urticaria [Unknown]
